FAERS Safety Report 25050542 (Version 4)
Quarter: 2025Q2

REPORT INFORMATION
  Report Type: Spontaneous
  Country: AT (occurrence: AT)
  Receive Date: 20250307
  Receipt Date: 20250523
  Transmission Date: 20250717
  Serious: Yes (Other)
  Sender: TAKEDA
  Company Number: AT-TAKEDA-2025TUS023477

PATIENT
  Age: 21 Year
  Sex: Male

DRUGS (3)
  1. ADZYNMA [Suspect]
     Active Substance: ADAMTS13, RECOMBINANT-KRHN
     Indication: Congenital thrombotic thrombocytopenic purpura
  2. ADZYNMA [Suspect]
     Active Substance: ADAMTS13, RECOMBINANT-KRHN
     Dosage: 3000 MILLIGRAM, Q2WEEKS
  3. ADZYNMA [Suspect]
     Active Substance: ADAMTS13, RECOMBINANT-KRHN
     Dosage: 3000 INTERNATIONAL UNIT, Q2WEEKS
     Dates: start: 20241218, end: 20250327

REACTIONS (7)
  - Transient ischaemic attack [Unknown]
  - Migraine with aura [Recovered/Resolved]
  - Migraine [Unknown]
  - Visual impairment [Unknown]
  - Dyschromatopsia [Recovered/Resolved]
  - Photophobia [Unknown]
  - Headache [Unknown]
